FAERS Safety Report 5631960-9 (Version None)
Quarter: 2008Q1

REPORT INFORMATION
  Report Type: 
  Country: None (occurrence: None)
  Receive Date: 20080220
  Receipt Date: 20080212
  Transmission Date: 20080703
  Serious: Yes (Hospitalization)
  Sender: FDA-Public Use
  Company Number: ES-ELI_LILLY_AND_COMPANY-ES200802002647

PATIENT
  Age: 64 Year
  Sex: Female

DRUGS (5)
  1. FORTEO [Suspect]
     Indication: OSTEOPOROSIS
     Dosage: 20 UG, UNKNOWN
     Route: 058
     Dates: start: 20071101
  2. CARDIL [Concomitant]
     Dosage: UNK, UNKNOWN
     Route: 065
  3. ATENOLOL [Concomitant]
     Dosage: UNK, UNKNOWN
     Route: 065
  4. ADIRO [Concomitant]
     Dosage: UNK, UNKNOWN
     Route: 065
  5. ATACAND [Concomitant]
     Dosage: UNK, UNKNOWN
     Route: 065

REACTIONS (1)
  - CEREBROVASCULAR ACCIDENT [None]
